FAERS Safety Report 22236175 (Version 1)
Quarter: 2023Q2

REPORT INFORMATION
  Report Type: Spontaneous
  Country: US (occurrence: US)
  Receive Date: 20230420
  Receipt Date: 20230420
  Transmission Date: 20230722
  Serious: No
  Sender: FDA-Public Use
  Company Number: US-ANIPHARMA-2022-US-012947

PATIENT
  Age: 51 Year
  Sex: Female
  Weight: 61.24 kg

DRUGS (2)
  1. INDERAL LA [Suspect]
     Active Substance: PROPRANOLOL HYDROCHLORIDE
     Indication: Migraine
     Dosage: 80 MILLIGRAM, ORALLY ONCE A DAY
     Route: 048
     Dates: start: 2000
  2. CLARITIN [Concomitant]
     Active Substance: LORATADINE
     Dosage: AS NEEDED

REACTIONS (3)
  - Therapeutic product effect decreased [Not Recovered/Not Resolved]
  - Tension [Not Recovered/Not Resolved]
  - Irritability [Not Recovered/Not Resolved]

NARRATIVE: CASE EVENT DATE: 20220301
